FAERS Safety Report 9398883 (Version 1)
Quarter: 2013Q3

REPORT INFORMATION
  Report Type: Spontaneous
  Country: FR (occurrence: FR)
  Receive Date: 20130712
  Receipt Date: 20130712
  Transmission Date: 20140515
  Serious: Yes (Hospitalization)
  Sender: FDA-Public Use
  Company Number: FR-ASTRAZENECA-2013SE50801

PATIENT
  Age: 21378 Day
  Sex: Male

DRUGS (8)
  1. BRILIQUE [Suspect]
     Indication: CARDIAC DISORDER
     Route: 048
     Dates: start: 20130401, end: 20130410
  2. KARDEGIC [Suspect]
     Indication: CARDIAC DISORDER
     Route: 048
     Dates: start: 20130401
  3. TAHOR [Suspect]
     Indication: CARDIAC DISORDER
     Route: 048
     Dates: start: 20130401, end: 20130410
  4. KREDEX [Suspect]
     Indication: CARDIAC DISORDER
     Route: 048
     Dates: start: 20130401, end: 20130410
  5. KREDEX [Suspect]
     Indication: CARDIAC DISORDER
     Route: 048
     Dates: start: 20130412
  6. COVERSYL [Suspect]
     Indication: CARDIAC DISORDER
     Route: 048
     Dates: start: 20130401, end: 20130410
  7. COVERSYL [Suspect]
     Indication: CARDIAC DISORDER
     Route: 048
     Dates: start: 20130415
  8. DAFALGAN [Concomitant]
     Indication: PYREXIA
     Dates: start: 20130408

REACTIONS (6)
  - Hepatic enzyme increased [Recovered/Resolved]
  - Pyrexia [Recovered/Resolved]
  - Vomiting [Recovered/Resolved]
  - Drug eruption [Recovered/Resolved]
  - Pruritus [Recovered/Resolved]
  - Off label use [Unknown]
